FAERS Safety Report 8445728-1 (Version None)
Quarter: 2012Q2

REPORT INFORMATION
  Report Type: 
  Country: None (occurrence: None)
  Receive Date: 20120618
  Receipt Date: 20120614
  Transmission Date: 20120825
  Serious: Yes (Hospitalization)
  Sender: FDA-Public Use
  Company Number: FR-GLAXOSMITHKLINE-B0708170A

PATIENT
  Sex: Male

DRUGS (9)
  1. CRESTOR [Concomitant]
     Route: 065
  2. AUGMENTIN '125' [Suspect]
     Indication: INFLAMMATION
     Dosage: 1G THREE TIMES PER DAY
     Route: 048
     Dates: start: 20110303, end: 20110307
  3. NEXIUM [Concomitant]
     Route: 065
  4. GLUCOPHAGE [Concomitant]
     Route: 065
  5. PENTOXIFYLLINE [Concomitant]
     Route: 065
     Dates: start: 20110201
  6. CORDARONE [Concomitant]
     Route: 065
  7. OXAZEPAM [Concomitant]
     Route: 065
  8. LOSARTAN POTASSIUM [Concomitant]
     Route: 065
  9. ASPIRIN [Concomitant]
     Route: 065

REACTIONS (2)
  - PRURITUS [None]
  - ERYTHEMA [None]
